FAERS Safety Report 8402482-7 (Version None)
Quarter: 2012Q2

REPORT INFORMATION
  Report Type: 
  Country: None (occurrence: None)
  Receive Date: 20120323
  Receipt Date: 20110727
  Transmission Date: 20120825
  Serious: Yes (Hospitalization)
  Sender: FDA-Public Use
  Company Number: 163-21880-110501111

PATIENT
  Age: 62 Year
  Sex: Male

DRUGS (6)
  1. CIPRO [Concomitant]
  2. PREDNISONE TAB [Concomitant]
  3. AUGMENTIN '125' [Concomitant]
  4. REVLIMID [Suspect]
     Indication: MYELODYSPLASTIC SYNDROME
     Dosage: 6 MG, DAILY, PO
     Route: 048
     Dates: start: 20101124, end: 20110401
  5. CLINDAMYCIN [Concomitant]
  6. COLCHICINE [Concomitant]

REACTIONS (3)
  - DIARRHOEA [None]
  - CELLULITIS [None]
  - GOUT [None]
